FAERS Safety Report 7929931-2 (Version None)
Quarter: 2011Q4

REPORT INFORMATION
  Report Type: 
  Country: None (occurrence: None)
  Receive Date: 20111108
  Receipt Date: 20110210
  Transmission Date: 20120403
  Serious: Yes (Other)
  Sender: FDA-Public Use
  Company Number: PHHY2011US12226

PATIENT
  Age: 45 Year
  Sex: Female

DRUGS (5)
  1. OMEGA-3-ACID ETHYL ESTERS (LOVAZA) [Concomitant]
  2. VITAMIN D [Concomitant]
  3. FEMARA [Concomitant]
  4. ZOMETA [Suspect]
     Indication: PROPHYLAXIS
     Dosage: INFUSION
  5. PHENTERMINE [Concomitant]

REACTIONS (6)
  - FATIGUE [None]
  - PAIN [None]
  - CRYING [None]
  - ACTIVITIES OF DAILY LIVING IMPAIRED [None]
  - FEELING ABNORMAL [None]
  - ARTHRALGIA [None]
